FAERS Safety Report 21328733 (Version 1)
Quarter: 2022Q3

REPORT INFORMATION
  Report Type: Spontaneous
  Country: GB (occurrence: GB)
  Receive Date: 20220913
  Receipt Date: 20220913
  Transmission Date: 20221027
  Serious: Yes (Other)
  Sender: FDA-Public Use
  Company Number: GB-MHRA-MED-202208311303292170-FKPSC

PATIENT
  Sex: Female

DRUGS (1)
  1. DOTAREM [Suspect]
     Active Substance: GADOTERATE MEGLUMINE
     Indication: Product used for unknown indication
     Route: 065
     Dates: start: 20220831, end: 20220831

REACTIONS (7)
  - Urticaria [Recovering/Resolving]
  - Rash macular [Unknown]
  - Dizziness [Unknown]
  - Disorientation [Unknown]
  - Oropharyngeal discomfort [Unknown]
  - Dysphagia [Recovering/Resolving]
  - Chills [Recovering/Resolving]

NARRATIVE: CASE EVENT DATE: 20220831
